FAERS Safety Report 16056753 (Version 1)
Quarter: 2019Q2

REPORT INFORMATION
  Report Type: Spontaneous
  Country: US (occurrence: US)
  Receive Date: 20190310
  Receipt Date: 20190310
  Transmission Date: 20190711
  Serious: Yes (Other)
  Sender: FDA-Public Use
  Company Number: None

PATIENT
  Age: 59 Year
  Sex: Female
  Weight: 72 kg

DRUGS (1)
  1. CLONAZEPAM.5MG [Suspect]
     Active Substance: CLONAZEPAM
     Indication: VERTIGO
     Dosage: ?          QUANTITY:1 TABLET(S);?
     Route: 048
     Dates: start: 20180501, end: 20180501

REACTIONS (4)
  - Malaise [None]
  - Dysstasia [None]
  - Gait inability [None]
  - Product substitution issue [None]
